FAERS Safety Report 5676223-0 (Version None)
Quarter: 2008Q1

REPORT INFORMATION
  Report Type: 
  Country: None (occurrence: None)
  Receive Date: 20080321
  Receipt Date: 20080311
  Transmission Date: 20080703
  Serious: Yes (Other)
  Sender: FDA-Public Use
  Company Number: NL-ELI_LILLY_AND_COMPANY-NL200803002803

PATIENT
  Age: 40 Year
  Sex: Male

DRUGS (2)
  1. CYMBALTA [Suspect]
     Indication: DEPRESSION
     Dosage: UNK, UNKNOWN
  2. CYMBALTA [Suspect]
     Dosage: UNK, EACH EVENING

REACTIONS (2)
  - CHEST PAIN [None]
  - OESOPHAGEAL SPASM [None]
